FAERS Safety Report 17684186 (Version 4)
Quarter: 2020Q2

REPORT INFORMATION
  Report Type: Report from Study
  Country: US (occurrence: US)
  Receive Date: 20200420
  Receipt Date: 20200609
  Transmission Date: 20200714
  Serious: Yes (Death, Hospitalization)
  Sender: FDA-Public Use
  Company Number: US-SA-2020SA100314

PATIENT

DRUGS (9)
  1. SARILUMAB [Suspect]
     Active Substance: SARILUMAB
     Indication: COVID-19
     Dosage: 200 MG, SINGLE
     Route: 042
     Dates: start: 20200408, end: 20200408
  2. METHYLPREDNISOLONE. [Concomitant]
     Active Substance: METHYLPREDNISOLONE
     Indication: COVID-19
     Dosage: 40 MG, BID
     Route: 048
     Dates: start: 20200404, end: 20200407
  3. HYDROXYCHLOROQUINE [Concomitant]
     Active Substance: HYDROXYCHLOROQUINE
     Indication: COVID-19
     Dosage: 200 MG, BID
     Route: 048
     Dates: start: 20200402, end: 20200407
  4. AZITHROMYCIN 0.5-ETHANOL MONOHYDRATE [Concomitant]
     Active Substance: AZITHROMYCIN HEMIETHANOLATE MONOHYDRATE
     Indication: COVID-19
     Dosage: 500 MG, QD
     Route: 048
     Dates: start: 20200401, end: 20200402
  5. FAMOTIDINE. [Concomitant]
     Active Substance: FAMOTIDINE
     Indication: COVID-19
     Dosage: 20 MG, EVERY 48 HOURS
     Route: 042
     Dates: start: 20200412, end: 20200413
  6. ASPIRIN [ACETYLSALICYLIC ACID] [Concomitant]
     Active Substance: ASPIRIN
     Indication: THROMBOSIS PROPHYLAXIS
     Dosage: 81 MG, QD
     Route: 048
     Dates: start: 20200412, end: 20200413
  7. NOREPINEPHRINE. [Concomitant]
     Active Substance: NOREPINEPHRINE
     Indication: BLOOD PRESSURE MEASUREMENT
     Dosage: 16 MG, INFUSION
     Route: 042
     Dates: start: 20200411, end: 20200413
  8. ANAKINRA [Concomitant]
     Active Substance: ANAKINRA
     Indication: COVID-19
     Dosage: 100 MG, QD
     Route: 058
     Dates: start: 20200404, end: 20200407
  9. CEFTRIAXONE. [Concomitant]
     Active Substance: CEFTRIAXONE
     Indication: COVID-19
     Dosage: 1000 MG, BID
     Route: 042
     Dates: start: 20200403, end: 20200407

REACTIONS (2)
  - Cardio-respiratory arrest [Fatal]
  - Liver function test abnormal [Not Recovered/Not Resolved]

NARRATIVE: CASE EVENT DATE: 20200412
